FAERS Safety Report 16917689 (Version 1)
Quarter: 2019Q4

REPORT INFORMATION
  Report Type: Spontaneous
  Country: GB (occurrence: GB)
  Receive Date: 20191015
  Receipt Date: 20191015
  Transmission Date: 20200122
  Serious: Yes (Other)
  Sender: FDA-Public Use
  Company Number: GB-TEVA-2019-GB-1120764

PATIENT
  Age: 76 Year
  Sex: Female
  Weight: 81.64 kg

DRUGS (1)
  1. DULOXETINE. [Suspect]
     Active Substance: DULOXETINE
     Indication: URINARY INCONTINENCE
     Dosage: 20 MILLIGRAM
     Route: 048
     Dates: start: 20190905, end: 20190907

REACTIONS (4)
  - Peripheral swelling [Recovered/Resolved]
  - Lethargy [Unknown]
  - Swelling face [Unknown]
  - Disorientation [Unknown]

NARRATIVE: CASE EVENT DATE: 20190906
